FAERS Safety Report 14496250 (Version 1)
Quarter: 2018Q1

REPORT INFORMATION
  Report Type: Report from Study
  Country: JP (occurrence: JP)
  Receive Date: 20180207
  Receipt Date: 20180207
  Transmission Date: 20180509
  Serious: Yes (Other)
  Sender: FDA-Public Use
  Company Number: JP-ROCHE-2064400

PATIENT
  Age: 61 Year
  Sex: Female

DRUGS (6)
  1. BLINDED ATEZOLIZUMAB [Suspect]
     Active Substance: ATEZOLIZUMAB
     Indication: OVARIAN EPITHELIAL CANCER RECURRENT
     Route: 042
     Dates: start: 20171016, end: 20180124
  2. PEGYLATED LIPOSOMAL DOXORUBICIN [Suspect]
     Active Substance: DOXORUBICIN
     Indication: OVARIAN EPITHELIAL CANCER RECURRENT
     Route: 042
     Dates: start: 20171016, end: 20180124
  3. CARBOPLATIN. [Suspect]
     Active Substance: CARBOPLATIN
     Indication: OVARIAN EPITHELIAL CANCER RECURRENT
     Dosage: AUC = 5, D1
     Route: 042
     Dates: start: 20171016
  4. PIPERAZINE [Concomitant]
     Active Substance: PIPERAZINE
  5. BEVACIZUMAB. [Suspect]
     Active Substance: BEVACIZUMAB
     Dosage: MAINTAINNACE DOSE
     Route: 042
     Dates: end: 20180124
  6. BEVACIZUMAB. [Suspect]
     Active Substance: BEVACIZUMAB
     Indication: OVARIAN EPITHELIAL CANCER RECURRENT
     Dosage: LOADING DOSE
     Route: 042
     Dates: start: 20171016

REACTIONS (1)
  - Dermatitis bullous [Not Recovered/Not Resolved]

NARRATIVE: CASE EVENT DATE: 20180124
